FAERS Safety Report 8388289-8 (Version None)
Quarter: 2012Q2

REPORT INFORMATION
  Report Type: 
  Country: None (occurrence: None)
  Receive Date: 20120525
  Receipt Date: 20110629
  Transmission Date: 20120825
  Serious: No
  Sender: FDA-Public Use
  Company Number: US-BAUSCH-2011BL004303

PATIENT
  Age: 88 Year
  Sex: Male

DRUGS (2)
  1. FLUOCINOLONE ACETONIDE [Suspect]
     Indication: CYSTOID MACULAR OEDEMA
     Route: 031
     Dates: start: 20101029
  2. FLUOCINOLONE ACETONIDE [Suspect]
     Indication: UVEITIS
     Route: 031
     Dates: start: 20101029

REACTIONS (1)
  - DRUG INEFFECTIVE [None]
